FAERS Safety Report 5567060-6 (Version None)
Quarter: 2007Q4

REPORT INFORMATION
  Report Type: 
  Country: None (occurrence: None)
  Receive Date: 20071219
  Receipt Date: 20041125
  Transmission Date: 20080405
  Serious: Yes (Death)
  Sender: FDA-Public Use
  Company Number: NL-ROCHE-387067

PATIENT
  Age: 53 Year
  Sex: Male

DRUGS (2)
  1. DORMICUM (INJ) [Suspect]
     Indication: PALLIATIVE CARE
     Route: 058
  2. DORMICUM (INJ) [Suspect]
     Route: 030

REACTIONS (2)
  - DRUG INEFFECTIVE [None]
  - PANCREATIC CARCINOMA [None]
